FAERS Safety Report 14380834 (Version 1)
Quarter: 2018Q1

REPORT INFORMATION
  Report Type: Report from Study
  Country: GB (occurrence: GB)
  Receive Date: 20180112
  Receipt Date: 20180112
  Transmission Date: 20180509
  Serious: Yes (Death)
  Sender: FDA-Public Use
  Company Number: GB-B.I. PHARMACEUTICALS,INC./RIDGEFIELD-2018-BI-001792

PATIENT

DRUGS (5)
  1. CLOPIDOGREL [Concomitant]
     Active Substance: CLOPIDOGREL BISULFATE
     Dosage: GIVEN BY ORAL OR NASOGASTRIC ROUTES
     Route: 065
  2. CLOPIDOGREL [Concomitant]
     Active Substance: CLOPIDOGREL BISULFATE
     Indication: PRODUCT USED FOR UNKNOWN INDICATION
     Dosage: LOAD
     Route: 065
  3. ASPRIN [Concomitant]
     Active Substance: ASPIRIN
     Dosage: 50-150 MG DAILY, TYPICALLY 75 MG, GIVEN BY ORAL, NASOGASTRIC, OR RECTAL ROUTES
     Route: 065
  4. ASPRIN [Concomitant]
     Active Substance: ASPIRIN
     Indication: PRODUCT USED FOR UNKNOWN INDICATION
     Dosage: LOAD
     Route: 065
  5. PERSANTIN [Suspect]
     Active Substance: DIPYRIDAMOLE
     Indication: CEREBRAL ISCHAEMIA
     Dosage: 200 MG BID MODIFIED RELEASE GIVEN PO OR 100 MG 3 OR 4 TIMES DAILY GIVEN BY PO OR NASOGASTRIC ROUTE
     Route: 065

REACTIONS (1)
  - Pneumonia [Fatal]
